FAERS Safety Report 5150662-9 (Version None)
Quarter: 2006Q4

REPORT INFORMATION
  Report Type: 
  Country: None (occurrence: None)
  Receive Date: 20061108
  Receipt Date: 20061027
  Transmission Date: 20070319
  Serious: Yes (Life-Threatening, Other)
  Sender: FDA-Public Use
  Company Number: HQWYE778230OCT06

PATIENT
  Age: 40 Year
  Sex: Female

DRUGS (3)
  1. ADVIL [Suspect]
     Indication: SELF-MEDICATION
     Dosage: ORAL
     Route: 048
     Dates: end: 20060115
  2. CELEBREX [Suspect]
     Indication: SELF-MEDICATION
     Dosage: 200MG AS NEEDED ORAL
     Route: 048
     Dates: start: 20051118, end: 20060115
  3. ZALDIAR (PARACETAMOL/TRAMADOL HYDROCHLORIDE, ) [Suspect]
     Indication: SELF-MEDICATION
     Dosage: ONE TABLET AS NEEDED ORAL
     Route: 048
     Dates: start: 20051118, end: 20060115

REACTIONS (4)
  - BONE MARROW FAILURE [None]
  - CONTUSION [None]
  - PANCYTOPENIA [None]
  - PETECHIAE [None]
